FAERS Safety Report 13119221 (Version 9)
Quarter: 2017Q3

REPORT INFORMATION
  Report Type: Report from Study
  Country: US (occurrence: US)
  Receive Date: 20170116
  Receipt Date: 20170913
  Transmission Date: 20171127
  Serious: Yes (Hospitalization, Other)
  Sender: FDA-Public Use
  Company Number: US-GILEAD-2016-0249293

PATIENT
  Age: 54 Year
  Sex: Female

DRUGS (5)
  1. ADCIRCA [Concomitant]
     Active Substance: TADALAFIL
  2. AMLODIPINE [Concomitant]
     Active Substance: AMLODIPINE BESYLATE
  3. OXYGEN. [Concomitant]
     Active Substance: OXYGEN
  4. AMBRISENTAN [Suspect]
     Active Substance: AMBRISENTAN
     Indication: PULMONARY ARTERIAL HYPERTENSION
     Dosage: 10 MG, QD
     Route: 048
     Dates: start: 20100907
  5. TYVASO [Concomitant]
     Active Substance: TREPROSTINIL

REACTIONS (9)
  - Pulmonary capillary haemangiomatosis [Not Recovered/Not Resolved]
  - Flushing [Not Recovered/Not Resolved]
  - Diarrhoea [Not Recovered/Not Resolved]
  - Endodontic procedure [Unknown]
  - Head discomfort [Unknown]
  - Procedural pain [Not Recovered/Not Resolved]
  - Erythema [Not Recovered/Not Resolved]
  - Lung transplant [Unknown]
  - Feeling abnormal [Not Recovered/Not Resolved]
